FAERS Safety Report 6765053-4 (Version None)
Quarter: 2010Q2

REPORT INFORMATION
  Report Type: 
  Country: None (occurrence: None)
  Receive Date: 20100609
  Receipt Date: 20100609
  Transmission Date: 20101027
  Serious: No
  Sender: FDA-Public Use
  Company Number: None

PATIENT
  Age: 62 Year
  Sex: Male

DRUGS (1)
  1. PROAIR HFA [Suspect]

REACTIONS (2)
  - DEVICE MALFUNCTION [None]
  - PRODUCT QUALITY ISSUE [None]
